FAERS Safety Report 5660757-9 (Version None)
Quarter: 2008Q1

REPORT INFORMATION
  Report Type: 
  Country: None (occurrence: None)
  Receive Date: 20080311
  Receipt Date: 20080303
  Transmission Date: 20080703
  Serious: Yes (Hospitalization, Other)
  Sender: FDA-Public Use
  Company Number: US-ELI_LILLY_AND_COMPANY-US200711006282

PATIENT
  Age: 69 Year
  Sex: Female
  Weight: 102.4 kg

DRUGS (6)
  1. BYETTA [Suspect]
     Dosage: 5 UG, UNKNOWN
     Dates: start: 20071001, end: 20071201
  2. METFORMIN HCL [Concomitant]
     Dosage: 1000 MG, 2/D
  3. GLIPIZIDE [Concomitant]
     Dosage: 10 MG, DAILY (1/D)
  4. ACTOS [Concomitant]
     Dosage: 45 MG, DAILY (1/D)
     Route: 048
  5. LISINOPRIL [Concomitant]
     Dosage: 10 MG, UNKNOWN
     Route: 065
  6. LIPITOR [Concomitant]
     Dosage: 10 MG, UNK

REACTIONS (3)
  - GALLBLADDER OPERATION [None]
  - PANCREATITIS [None]
  - WEIGHT DECREASED [None]
